FAERS Safety Report 9102408 (Version 1)
Quarter: 2013Q1

REPORT INFORMATION
  Report Type: Spontaneous
  Country: US (occurrence: US)
  Receive Date: 20130218
  Receipt Date: 20130218
  Transmission Date: 20140127
  Serious: Yes (Death)
  Sender: FDA-Public Use
  Company Number: US-COVIDIEN/TYCO HEALTHCARE/MALLINCKRODT-T201300501

PATIENT
  Age: 39 Year
  Sex: Female

DRUGS (7)
  1. TRAMADOL [Suspect]
     Dosage: UNK
     Route: 048
  2. HYDROCODONE [Suspect]
  3. DIAZEPAM [Suspect]
  4. DIPHENHYDRAMINE W/PARACETAMOL [Suspect]
  5. LISINOPRIL [Suspect]
  6. PROMETHAZINE [Suspect]
  7. TRAZODONE [Suspect]

REACTIONS (3)
  - Cardio-respiratory arrest [Fatal]
  - Cardiac arrest [None]
  - Respiratory arrest [None]
